FAERS Safety Report 5340152-2 (Version None)
Quarter: 2007Q2

REPORT INFORMATION
  Report Type: 
  Country: None (occurrence: None)
  Receive Date: 20070525
  Receipt Date: 20070525
  Transmission Date: 20071010
  Serious: Yes (Other)
  Sender: FDA-Public Use
  Company Number: None

PATIENT

DRUGS (2)
  1. NAROPIN [Suspect]
     Indication: NERVE BLOCK
     Dosage: 30ML 3
     Dates: start: 20070510, end: 20070514
  2. NAROPIN [Suspect]
     Indication: SURGERY
     Dosage: 30ML 3
     Dates: start: 20070510, end: 20070514

REACTIONS (2)
  - ANAESTHETIC COMPLICATION [None]
  - PROCEDURAL COMPLICATION [None]
